FAERS Safety Report 24766395 (Version 3)
Quarter: 2025Q1

REPORT INFORMATION
  Report Type: Report from Study
  Country: US (occurrence: US)
  Receive Date: 20241223
  Receipt Date: 20250204
  Transmission Date: 20250408
  Serious: Yes (Hospitalization, Other)
  Sender: JAZZ
  Company Number: US-JAZZ PHARMACEUTICALS-2024-US-024282

PATIENT
  Age: 62 Year
  Sex: Male

DRUGS (2)
  1. XYWAV [Suspect]
     Active Substance: CALCIUM OXYBATE\MAGNESIUM OXYBATE\POTASSIUM OXYBATE\SODIUM OXYBATE
     Indication: Hypersomnia
  2. BYSTOLIC [Concomitant]
     Active Substance: NEBIVOLOL HYDROCHLORIDE
     Indication: Hypertension

REACTIONS (5)
  - Haemothorax [Unknown]
  - Injury [Unknown]
  - Pneumothorax [Unknown]
  - Rib fracture [Unknown]
  - Neuralgia [Unknown]

NARRATIVE: CASE EVENT DATE: 20241201
